FAERS Safety Report 11271879 (Version 15)
Quarter: 2017Q1

REPORT INFORMATION
  Report Type: Report from Study
  Country: CA (occurrence: CA)
  Receive Date: 20150715
  Receipt Date: 20170224
  Transmission Date: 20170428
  Serious: Yes (Life-Threatening, Hospitalization, Other)
  Sender: FDA-Public Use
  Company Number: CA-ROCHE-1605742

PATIENT
  Age: 74 Year
  Sex: Female

DRUGS (11)
  1. ESBRIET [Suspect]
     Active Substance: PIRFENIDONE
     Route: 048
     Dates: start: 20140424
  2. NAC (ACETYLCYSTEINE) [Concomitant]
  3. CELEBREX [Concomitant]
     Active Substance: CELECOXIB
  4. ESBRIET [Suspect]
     Active Substance: PIRFENIDONE
     Indication: IDIOPATHIC PULMONARY FIBROSIS
     Route: 048
     Dates: start: 20130615
  5. ESBRIET [Suspect]
     Active Substance: PIRFENIDONE
     Dosage: SUSPENSION
     Route: 048
     Dates: start: 20130925, end: 20140102
  6. NEURONTIN [Concomitant]
     Active Substance: GABAPENTIN
  7. ESBRIET [Suspect]
     Active Substance: PIRFENIDONE
     Dosage: SUSPENSION
     Route: 048
     Dates: start: 20140215, end: 20140310
  8. TECTA [Concomitant]
     Active Substance: PANTOPRAZOLE MAGNESIUM
  9. ESBRIET [Suspect]
     Active Substance: PIRFENIDONE
     Route: 048
     Dates: start: 20130622
  10. ESBRIET [Suspect]
     Active Substance: PIRFENIDONE
     Route: 048
     Dates: start: 20140506
  11. ESBRIET [Suspect]
     Active Substance: PIRFENIDONE
     Route: 048
     Dates: start: 20130629, end: 20130923

REACTIONS (19)
  - Decreased appetite [Recovering/Resolving]
  - Oxygen saturation decreased [Not Recovered/Not Resolved]
  - Cardiac failure [Unknown]
  - Laryngeal injury [Unknown]
  - Haemoglobin decreased [Unknown]
  - Pulmonary function test decreased [Not Recovered/Not Resolved]
  - Coma [Unknown]
  - Rotator cuff syndrome [Unknown]
  - Drug intolerance [Not Recovered/Not Resolved]
  - Cerebrovascular accident [Unknown]
  - Angina pectoris [Not Recovered/Not Resolved]
  - Injection site abscess [Unknown]
  - Blood potassium decreased [Unknown]
  - Liver function test increased [Recovered/Resolved]
  - Diverticulitis [Unknown]
  - Rhinorrhoea [Not Recovered/Not Resolved]
  - Cardiac procedure complication [Unknown]
  - Eructation [Recovered/Resolved]
  - Neuralgia [Not Recovered/Not Resolved]

NARRATIVE: CASE EVENT DATE: 2015
